FAERS Safety Report 8145423-2 (Version None)
Quarter: 2012Q1

REPORT INFORMATION
  Report Type: 
  Country: None (occurrence: None)
  Receive Date: 20120217
  Receipt Date: 20120209
  Transmission Date: 20120608
  Serious: Yes (Other)
  Sender: FDA-Public Use
  Company Number: US-ABBOTT-12P-163-0903741-00

PATIENT
  Age: 35 Year
  Sex: Male

DRUGS (2)
  1. VICODIN [Suspect]
     Indication: PRODUCT USED FOR UNKNOWN INDICATION
  2. SPRYCEL [Suspect]
     Indication: CHRONIC MYELOID LEUKAEMIA
     Dosage: DAILY, 6370 MG TOTAL
     Route: 048
     Dates: start: 20080218, end: 20120116

REACTIONS (2)
  - EXCORIATION [None]
  - SYNCOPE [None]
